FAERS Safety Report 5912398-3 (Version None)
Quarter: 2008Q4

REPORT INFORMATION
  Report Type: 
  Country: None (occurrence: None)
  Receive Date: 20081008
  Receipt Date: 20081002
  Transmission Date: 20090506
  Serious: Yes (Other)
  Sender: FDA-Public Use
  Company Number: BR-ALLERGAN-0812348US

PATIENT
  Sex: Male

DRUGS (2)
  1. ZYMAR [Suspect]
     Indication: CONJUNCTIVITIS
     Dosage: 1 GTT, Q4HR
     Route: 047
     Dates: start: 20080930
  2. PRED MILD [Suspect]
     Indication: CONJUNCTIVITIS
     Dosage: 1 GTT, Q2HR
     Route: 047
     Dates: start: 20080930

REACTIONS (1)
  - TREMOR [None]
